FAERS Safety Report 21985441 (Version 1)
Quarter: 2023Q1

REPORT INFORMATION
  Report Type: Spontaneous
  Country: FR (occurrence: FR)
  Receive Date: 20230213
  Receipt Date: 20230213
  Transmission Date: 20230417
  Serious: Yes (Death)
  Sender: FDA-Public Use
  Company Number: None

PATIENT
  Age: 68 Year
  Sex: Male

DRUGS (5)
  1. LYRICA [Suspect]
     Active Substance: PREGABALIN
     Indication: Product used for unknown indication
     Dosage: 100 MILLIGRAM
     Route: 048
     Dates: start: 20220814, end: 20220814
  2. CLOZAPINE [Suspect]
     Active Substance: CLOZAPINE
     Indication: Product used for unknown indication
     Dosage: 250 MILLIGRAM
     Route: 048
     Dates: start: 20220814, end: 20220814
  3. ARTANE [Suspect]
     Active Substance: TRIHEXYPHENIDYL HYDROCHLORIDE
     Indication: Product used for unknown indication
     Dosage: 5 MILLIGRAM
     Route: 048
     Dates: start: 20220814, end: 20220814
  4. AMISULPRIDE [Suspect]
     Active Substance: AMISULPRIDE
     Indication: Product used for unknown indication
     Dosage: 400 MILLIGRAM
     Route: 048
     Dates: start: 20220814, end: 20220814
  5. VALPROATE SODIUM [Suspect]
     Active Substance: VALPROATE SODIUM
     Indication: Product used for unknown indication
     Dosage: 750 MILLIGRAM
     Route: 048
     Dates: start: 20220814, end: 20220814

REACTIONS (3)
  - Hypotension [Fatal]
  - Hypoxia [Fatal]
  - Wrong patient received product [Recovered/Resolved]

NARRATIVE: CASE EVENT DATE: 20220814
